FAERS Safety Report 19238697 (Version 1)
Quarter: 2021Q2

REPORT INFORMATION
  Report Type: Report from Study
  Country: US (occurrence: US)
  Receive Date: 20210510
  Receipt Date: 20210510
  Transmission Date: 20210717
  Serious: Yes (Other)
  Sender: FDA-Public Use
  Company Number: US-IPSEN BIOPHARMACEUTICALS, INC.-2021-11371

PATIENT
  Age: 74 Year
  Sex: Female
  Weight: 65.77 kg

DRUGS (3)
  1. BUPROPION HYDROCHLORIDE. [Concomitant]
     Active Substance: BUPROPION HYDROCHLORIDE
  2. LEVOTHYROXINE. [Concomitant]
     Active Substance: LEVOTHYROXINE
  3. SOMATULINE DEPOT [Suspect]
     Active Substance: LANREOTIDE ACETATE
     Indication: GASTROENTEROPANCREATIC NEUROENDOCRINE TUMOUR DISEASE
     Route: 058
     Dates: start: 2019

REACTIONS (13)
  - Loss of consciousness [Unknown]
  - Injection site nerve damage [Unknown]
  - Product dose omission issue [Unknown]
  - Neoplasm [Unknown]
  - Abdominal distension [Unknown]
  - Injection site mass [Unknown]
  - Dizziness [Unknown]
  - Incorrect product administration duration [Unknown]
  - Product administration error [Unknown]
  - COVID-19 [Unknown]
  - Fatigue [Unknown]
  - Flatulence [Unknown]
  - Gastrointestinal motility disorder [Unknown]
